FAERS Safety Report 6491008-3 (Version None)
Quarter: 2009Q4

REPORT INFORMATION
  Report Type: 
  Country: None (occurrence: None)
  Receive Date: 20091211
  Receipt Date: 20091202
  Transmission Date: 20100525
  Serious: Yes (Disabling)
  Sender: FDA-Public Use
  Company Number: JP-ROCHE-673397

PATIENT
  Sex: Female

DRUGS (4)
  1. HERCEPTIN [Suspect]
     Dosage: 2 MG, 1/WEEK
     Route: 065
     Dates: start: 20091119, end: 20091119
  2. HERCEPTIN [Suspect]
     Dosage: 2 MG, 1/WEEK
     Route: 065
     Dates: start: 20091119, end: 20091119
  3. TAXOTERE [Suspect]
     Dosage: 36 MG/M2, Q3W
     Route: 041
     Dates: start: 20091119, end: 20091119
  4. TAXOTERE [Suspect]
     Dosage: 36 MG/M2, Q3W
     Route: 041
     Dates: start: 20091119, end: 20091119

REACTIONS (2)
  - ATRIOVENTRICULAR BLOCK COMPLETE [None]
  - BRADYCARDIA [None]
